FAERS Safety Report 5972504-1 (Version None)
Quarter: 2008Q4

REPORT INFORMATION
  Report Type: 
  Country: None (occurrence: None)
  Receive Date: 20081201
  Receipt Date: 20081014
  Transmission Date: 20090506
  Serious: Yes (Hospitalization)
  Sender: FDA-Public Use
  Company Number: B0519686A

PATIENT
  Age: 69 Year
  Sex: Female
  Weight: 53.5 kg

DRUGS (13)
  1. REQUIP [Suspect]
     Indication: PARKINSON'S DISEASE
     Dates: start: 20070904
  2. MADOPAR [Concomitant]
     Indication: PARKINSON'S DISEASE
     Dosage: 300MG PER DAY
     Route: 048
  3. DEPAS [Concomitant]
     Route: 048
  4. SOLON [Concomitant]
     Route: 048
  5. BIOFERMIN [Concomitant]
     Route: 048
  6. MAGNESIUM OXIDE [Concomitant]
     Route: 048
  7. HALCION [Concomitant]
     Route: 048
  8. NEUROTROPIN [Concomitant]
     Dates: start: 20071029, end: 20071126
  9. MYONAL [Concomitant]
     Route: 048
     Dates: start: 20071029, end: 20071126
  10. MOBIC [Concomitant]
     Route: 048
     Dates: start: 20071029, end: 20071111
  11. MOHRUS [Concomitant]
     Route: 062
     Dates: start: 20071029, end: 20071126
  12. VOLTAREN [Concomitant]
     Route: 062
     Dates: start: 20071029, end: 20071126
  13. PRAMIPEXOLE DIHYDROCHLORIDE [Concomitant]
     Indication: PARKINSON'S DISEASE
     Dosage: 1.5MG PER DAY
     Route: 048
     Dates: start: 20070723, end: 20070824

REACTIONS (8)
  - ARTHRALGIA [None]
  - BACK PAIN [None]
  - CONJUNCTIVITIS [None]
  - GASTROENTERITIS [None]
  - HALLUCINATION [None]
  - POLLAKIURIA [None]
  - PYELONEPHRITIS [None]
  - PYREXIA [None]
